FAERS Safety Report 9580144 (Version 1)
Quarter: 2013Q4

REPORT INFORMATION
  Report Type: Spontaneous
  Country: US (occurrence: US)
  Receive Date: 20131002
  Receipt Date: 20131002
  Transmission Date: 20140711
  Serious: No
  Sender: FDA-Public Use
  Company Number: US-BAYER-2013-116126

PATIENT
  Sex: 0

DRUGS (1)
  1. CIPRO [Suspect]

REACTIONS (1)
  - Wrong technique in drug usage process [None]
